FAERS Safety Report 10685873 (Version 1)
Quarter: 2014Q4

REPORT INFORMATION
  Report Type: Spontaneous
  Country: FR (occurrence: FR)
  Receive Date: 20141231
  Receipt Date: 20141231
  Transmission Date: 20150529
  Serious: Yes (Life-Threatening, Hospitalization)
  Sender: FDA-Public Use
  Company Number: FR-PFIZER INC-2014358389

PATIENT
  Age: 37 Year
  Sex: Female

DRUGS (7)
  1. AMIKACIN [Suspect]
     Active Substance: AMIKACIN
     Indication: BACTERIAL SEPSIS
     Dosage: 1200 MG, DAILY
     Route: 042
     Dates: start: 20141121, end: 20141122
  2. MESTINON [Concomitant]
     Active Substance: PYRIDOSTIGMINE BROMIDE
  3. SPECIAFOLDINE [Concomitant]
     Active Substance: FOLIC ACID
  4. SOLUPRED [Concomitant]
     Active Substance: PREDNISOLONE
  5. ZYVOXID [Suspect]
     Active Substance: LINEZOLID
     Indication: BACTERIAL SEPSIS
     Dosage: 600 MG, 2X/DAY
     Route: 042
     Dates: start: 20141122, end: 20141123
  6. CEFTAZIDIME. [Suspect]
     Active Substance: CEFTAZIDIME
     Indication: BACTERIAL SEPSIS
     Dosage: 2 G, 3X/DAY
     Route: 042
     Dates: start: 20141122
  7. MESTINON [Concomitant]
     Active Substance: PYRIDOSTIGMINE BROMIDE

REACTIONS (1)
  - Myasthenia gravis crisis [Recovered/Resolved]

NARRATIVE: CASE EVENT DATE: 20141123
